FAERS Safety Report 7563550-5 (Version None)
Quarter: 2011Q2

REPORT INFORMATION
  Report Type: 
  Country: None (occurrence: None)
  Receive Date: 20110615
  Receipt Date: 20110602
  Transmission Date: 20111010
  Serious: Yes (Other)
  Sender: FDA-Public Use
  Company Number: 1000021564

PATIENT
  Age: 52 Year
  Sex: Female

DRUGS (1)
  1. ROFLUMILAST (ROFLUMILAST) (TABLETS) [Suspect]
     Indication: ASTHMA
     Dosage: (500 MCG), ORAL
     Route: 048
     Dates: start: 20110407, end: 20110501

REACTIONS (6)
  - DIARRHOEA [None]
  - MYALGIA [None]
  - DEPRESSION [None]
  - FATIGUE [None]
  - DIZZINESS [None]
  - GINGIVAL BLEEDING [None]
